FAERS Safety Report 13298261 (Version 1)
Quarter: 2017Q1

REPORT INFORMATION
  Report Type: Spontaneous
  Country: US (occurrence: US)
  Receive Date: 20170306
  Receipt Date: 20170306
  Transmission Date: 20170428
  Serious: No
  Sender: FDA-Public Use
  Company Number: None

PATIENT
  Age: 53 Year
  Sex: Female

DRUGS (1)
  1. IBRANCE [Suspect]
     Active Substance: PALBOCICLIB
     Indication: BREAST CANCER FEMALE
     Dosage: FEEQUENCY - 1CQDX21D
     Route: 048
     Dates: start: 20160816

REACTIONS (4)
  - Hot flush [None]
  - Pulmonary embolism [None]
  - Respiratory tract infection [None]
  - Cough [None]

NARRATIVE: CASE EVENT DATE: 20170306
